FAERS Safety Report 4528363-7 (Version None)
Quarter: 2004Q4

REPORT INFORMATION
  Report Type: 
  Country: None (occurrence: None)
  Receive Date: 20041126
  Receipt Date: 20040806
  Transmission Date: 20050328
  Serious: No
  Sender: FDA-Public Use
  Company Number: 2004US002218

PATIENT
  Age: 85 Year
  Sex: Male
  Weight: 70.3 kg

DRUGS (7)
  1. ALOXI [Suspect]
     Indication: PROPHYLAXIS OF NAUSEA AND VOMITING
     Dosage: 0.25 MG, QWK, INTRAVENOUS
     Route: 042
     Dates: start: 20040608, end: 20040730
  2. FLUOROURACIL [Concomitant]
  3. LEUCOVORIN CALCIUM [Concomitant]
  4. NORVASC [Concomitant]
  5. PROSCAR [Concomitant]
  6. ARICEPT [Concomitant]
  7. MEGACE [Concomitant]

REACTIONS (1)
  - DEMENTIA [None]
